FAERS Safety Report 24088851 (Version 2)
Quarter: 2024Q3

REPORT INFORMATION
  Report Type: Spontaneous
  Country: SI (occurrence: SI)
  Receive Date: 20240715
  Receipt Date: 20240823
  Transmission Date: 20241017
  Serious: Yes (Death)
  Sender: TEVA
  Company Number: None

PATIENT
  Age: 49 Year
  Sex: Male
  Weight: 130.5 kg

DRUGS (8)
  1. RISPERIDONE [Suspect]
     Active Substance: RISPERIDONE
     Indication: Hallucination, auditory
     Dosage: FIRST 1 MG, THEN ON 2 JUNE 20 MG, 3MG
     Route: 048
     Dates: start: 20240603
  2. NAPROXEN SODIUM [Concomitant]
     Active Substance: NAPROXEN\NAPROXEN SODIUM
     Indication: Product used for unknown indication
     Dosage: TIME INTERVAL: AS NECESSARY: 1-2 TBL IF NECESSARY
     Route: 048
     Dates: start: 20240607
  3. Prazine [Concomitant]
     Indication: Product used for unknown indication
     Dosage: 25 MG IN THE EVENING FROM 07.06.2024, (THE DRUG WAS INTRODUCED ON 30 MAY 2024, GRADUALLY INCREASE...
     Route: 065
     Dates: start: 20240530
  4. METHADONE [Concomitant]
     Active Substance: METHADONE HYDROCHLORIDE
     Indication: Product used for unknown indication
     Dosage: DURATION: 1 YEAR ; 60 MG (AT LEAST 1 YEAR)
     Route: 065
  5. SERTRALINE HYDROCHLORIDE [Concomitant]
     Active Substance: SERTRALINE HYDROCHLORIDE
     Indication: Product used for unknown indication
     Dosage: IN THE MORNING, THE DRUG WAS INTRODUCED ON 30.05.2024 IN A DOSE OF 25 MG, THE DOSE WAS GRADUALLY ...
     Route: 065
     Dates: start: 20240530
  6. SULPIRIDE [Concomitant]
     Active Substance: SULPIRIDE
     Indication: Anxiety
     Dosage: UP TO 3X50 MG ; DURATION: 1 YEAR
     Route: 048
     Dates: start: 20240530
  7. DIAZEPAM [Concomitant]
     Active Substance: DIAZEPAM
     Indication: Anxiety
     Dosage: 1 TBL ON 4-6H
     Route: 048
     Dates: start: 20240530
  8. LACTULOSE [Concomitant]
     Active Substance: LACTULOSE
     Indication: Dyspepsia
     Dosage: DOSE. 2 SPOONS IN THE MORNING
     Route: 048
     Dates: start: 20240607

REACTIONS (1)
  - Pulmonary embolism [Fatal]

NARRATIVE: CASE EVENT DATE: 20240610
